FAERS Safety Report 16770535 (Version 1)
Quarter: 2019Q3

REPORT INFORMATION
  Report Type: Spontaneous
  Country: GB (occurrence: GB)
  Receive Date: 20190904
  Receipt Date: 20190904
  Transmission Date: 20191005
  Serious: Yes (Life-Threatening)
  Sender: FDA-Public Use
  Company Number: GB-ACCORD-153743

PATIENT
  Age: 53 Year
  Sex: Male
  Weight: 88 kg

DRUGS (1)
  1. FINASTERIDE. [Suspect]
     Active Substance: FINASTERIDE
     Indication: BENIGN PROSTATIC HYPERPLASIA
     Route: 048
     Dates: start: 20181218, end: 20190816

REACTIONS (2)
  - Suicidal ideation [Not Recovered/Not Resolved]
  - Mood altered [Unknown]

NARRATIVE: CASE EVENT DATE: 20190813
